FAERS Safety Report 22746354 (Version 2)
Quarter: 2024Q3

REPORT INFORMATION
  Report Type: Spontaneous
  Country: US (occurrence: US)
  Receive Date: 20230725
  Receipt Date: 20240918
  Transmission Date: 20241017
  Serious: No
  Sender: SANOFI AVENTIS
  Company Number: US-SA-SAC20230721000992

PATIENT
  Age: 6 Year
  Sex: Female
  Weight: 20.8 kg

DRUGS (15)
  1. DUPIXENT [Suspect]
     Active Substance: DUPILUMAB
     Indication: Dermatitis atopic
     Dosage: 300 MG, Q4W
     Route: 058
     Dates: start: 20230417
  2. PIMECROLIMUS [Concomitant]
     Active Substance: PIMECROLIMUS
     Indication: Dermatitis atopic
     Dosage: UNK
  3. CLOBETASOL [Concomitant]
     Active Substance: CLOBETASOL
     Dosage: UNK
  4. ZINC [Concomitant]
     Active Substance: ZINC
     Dosage: 90 MG-15MG
  5. VITAMIN D NOS [Concomitant]
     Active Substance: CHOLECALCIFEROL\ERGOCALCIFEROL
     Dosage: UNK
  6. CINNAMON [Concomitant]
     Active Substance: CINNAMON
  7. FEVERFEW [Concomitant]
     Active Substance: FEVERFEW
  8. FENUGREEK SEED [Concomitant]
     Active Substance: FENUGREEK SEED
  9. DANDELION [Concomitant]
     Active Substance: TARAXACUM OFFICINALE POLLEN
  10. HERBALS [Concomitant]
     Active Substance: HERBALS
  11. MULLEIN [Concomitant]
  12. HERBALS [Concomitant]
     Active Substance: HERBALS
  13. GINGER [Concomitant]
     Active Substance: GINGER
  14. ECHINACEA [Concomitant]
     Active Substance: ECHINACEA, UNSPECIFIED
  15. WILD CHERRY BARK [Concomitant]
     Active Substance: WILD CHERRY BARK

REACTIONS (3)
  - Rash [Not Recovered/Not Resolved]
  - Injection site pain [Not Recovered/Not Resolved]
  - Dermatitis atopic [Not Recovered/Not Resolved]

NARRATIVE: CASE EVENT DATE: 20230101
